FAERS Safety Report 8252820-3 (Version None)
Quarter: 2012Q2

REPORT INFORMATION
  Report Type: 
  Country: None (occurrence: None)
  Receive Date: 20120402
  Receipt Date: 20120227
  Transmission Date: 20120825
  Serious: No
  Sender: FDA-Public Use
  Company Number: US-ABBOTT-12P-163-0912405-00

PATIENT
  Age: 67 Year
  Sex: Female

DRUGS (5)
  1. UNKNOWN BLOOD PRESSURE MEDICATION [Concomitant]
     Indication: PRODUCT USED FOR UNKNOWN INDICATION
  2. UNKNOWN HORMONES [Concomitant]
     Indication: PRODUCT USED FOR UNKNOWN INDICATION
  3. ANDROGEL [Suspect]
     Indication: EXPOSURE VIA PARTNER
     Dosage: SECONDARY EXPOSURE
     Route: 062
  4. PRASTERONE [Concomitant]
     Indication: PRODUCT USED FOR UNKNOWN INDICATION
     Dosage: TAKING TOGETHER WITH AERENALL FOR COMPOUNDING PHARMACY STUDY DRUG.
     Route: 048
  5. AERENALL [Concomitant]
     Indication: PRODUCT USED FOR UNKNOWN INDICATION
     Dosage: COMPOUNDING PHARMACY STUDY DRUG
     Dates: start: 20110901

REACTIONS (2)
  - ALOPECIA [None]
  - ACCIDENTAL EXPOSURE [None]
